FAERS Safety Report 8510662-5 (Version None)
Quarter: 2012Q3

REPORT INFORMATION
  Report Type: 
  Country: None (occurrence: None)
  Receive Date: 20120716
  Receipt Date: 20120709
  Transmission Date: 20120928
  Serious: Yes (Other)
  Sender: FDA-Public Use
  Company Number: US-AMGEN-USASP2012042337

PATIENT
  Age: 57 Year
  Sex: Male

DRUGS (1)
  1. ENBREL [Suspect]
     Indication: RHEUMATOID ARTHRITIS
     Dosage: 50 MG, QWK
     Dates: start: 20000220

REACTIONS (9)
  - RHEUMATOID ARTHRITIS [None]
  - DYSPEPSIA [None]
  - NEPHROLITHIASIS [None]
  - RETINAL DETACHMENT [None]
  - CONSTIPATION [None]
  - OROPHARYNGEAL PAIN [None]
  - CATARACT [None]
  - FURUNCLE [None]
  - DRUG HYPERSENSITIVITY [None]
